FAERS Safety Report 10578195 (Version 1)
Quarter: 2014Q4

REPORT INFORMATION
  Report Type: Spontaneous
  Country: US (occurrence: None)
  Receive Date: 20141111
  Receipt Date: 20141111
  Transmission Date: 20150529
  Serious: Yes (Disabling, Other)
  Sender: FDA-Public Use
  Company Number: None

PATIENT
  Age: 54 Year
  Sex: Male
  Weight: 104.33 kg

DRUGS (10)
  1. ZOLOFT [Concomitant]
     Active Substance: SERTRALINE HYDROCHLORIDE
  2. GLACOMA LUMIGAN EYEDROPS [Concomitant]
  3. LOVAZA [Concomitant]
     Active Substance: OMEGA-3-ACID ETHYL ESTERS
  4. KLONOPIN [Concomitant]
     Active Substance: CLONAZEPAM
  5. CPAP MACHINE [Concomitant]
  6. ACIPLEX [Concomitant]
  7. METFORMIN [Concomitant]
     Active Substance: METFORMIN HYDROCHLORIDE
  8. POTASSIUM IODIDE [Suspect]
     Active Substance: POTASSIUM IODIDE
     Indication: SCAN BRAIN
     Dosage: I HACD RO PRIOR EYE PROBLEMS EXCEPT GLACOMA WHICH PRESSURES ARE CONTROLLED
  9. LOSARTIN [Concomitant]
     Active Substance: LOSARTAN
  10. NEUROPTIN [Concomitant]

REACTIONS (2)
  - Procedural complication [None]
  - Vision blurred [None]

NARRATIVE: CASE EVENT DATE: 20140729
